FAERS Safety Report 13429329 (Version 1)
Quarter: 2017Q2

REPORT INFORMATION
  Report Type: Report from Study
  Country: US (occurrence: US)
  Receive Date: 20170411
  Receipt Date: 20170411
  Transmission Date: 20170830
  Serious: Yes (Other)
  Sender: FDA-Public Use
  Company Number: US-JAZZ-2017-US-003702

PATIENT
  Sex: Male

DRUGS (38)
  1. METADATE CD [Concomitant]
     Active Substance: METHYLPHENIDATE HYDROCHLORIDE
  2. ANDROGEL [Concomitant]
     Active Substance: TESTOSTERONE
  3. MIRTAZAPINE. [Concomitant]
     Active Substance: MIRTAZAPINE
  4. METHOCARBAMOL. [Concomitant]
     Active Substance: METHOCARBAMOL
  5. PRISTIQ EXTENDED-RELEASE [Concomitant]
     Active Substance: DESVENLAFAXINE SUCCINATE
  6. WELLBUTRIN [Concomitant]
     Active Substance: BUPROPION HYDROCHLORIDE
  7. REMERON [Concomitant]
     Active Substance: MIRTAZAPINE
  8. TRAZODONE [Concomitant]
     Active Substance: TRAZODONE HYDROCHLORIDE
  9. FLOMAX [Concomitant]
     Active Substance: TAMSULOSIN HYDROCHLORIDE
  10. PROPRANOLOL [Concomitant]
     Active Substance: PROPRANOLOL HYDROCHLORIDE
  11. SUMATRIPTAN SUCCINATE. [Concomitant]
     Active Substance: SUMATRIPTAN SUCCINATE
  12. ISOMETHEPTENE DICHLORAL APAP [Concomitant]
  13. FISH OIL CONCENTRATE [Concomitant]
     Active Substance: FISH OIL
  14. VITAMIN B12 [Concomitant]
     Active Substance: CYANOCOBALAMIN
  15. CLONAZEPAM. [Concomitant]
     Active Substance: CLONAZEPAM
  16. LUVOX [Concomitant]
     Active Substance: FLUVOXAMINE MALEATE
  17. PATADAY [Concomitant]
     Active Substance: OLOPATADINE HYDROCHLORIDE
  18. SOLYSIN [Concomitant]
  19. TOPAMAX [Concomitant]
     Active Substance: TOPIRAMATE
  20. XYREM [Suspect]
     Active Substance: SODIUM OXYBATE
     Dosage: 7 G, QD
     Route: 048
     Dates: start: 201703
  21. LOSARTAN POTASSIUM. [Concomitant]
     Active Substance: LOSARTAN POTASSIUM
  22. TESTOSTERON                        /00103101/ [Concomitant]
     Active Substance: TESTOSTERONE
  23. CIALIS [Concomitant]
     Active Substance: TADALAFIL
  24. GAS RELIEF [Concomitant]
     Active Substance: DIMETHICONE
  25. XYREM [Suspect]
     Active Substance: SODIUM OXYBATE
     Indication: NARCOLEPSY
     Dosage: 2.5 G, BID
     Route: 048
     Dates: start: 200906, end: 2009
  26. NORCO [Concomitant]
     Active Substance: ACETAMINOPHEN\HYDROCODONE BITARTRATE
  27. DEPLIN [Concomitant]
     Active Substance: LEVOMEFOLATE CALCIUM
  28. ELESTAT [Concomitant]
     Active Substance: EPINASTINE HYDROCHLORIDE
  29. VERAMYST [Concomitant]
     Active Substance: FLUTICASONE FUROATE
  30. CYMBALTA [Concomitant]
     Active Substance: DULOXETINE HYDROCHLORIDE
  31. PROVIGIL [Concomitant]
     Active Substance: MODAFINIL
  32. FROVA [Concomitant]
     Active Substance: FROVATRIPTAN SUCCINATE
  33. BRINTELLIX [Concomitant]
     Active Substance: VORTIOXETINE HYDROBROMIDE
  34. LUNESTA [Concomitant]
     Active Substance: ESZOPICLONE
  35. HYDROXYZINE HCL [Concomitant]
     Active Substance: HYDROXYZINE HYDROCHLORIDE
  36. XYREM [Suspect]
     Active Substance: SODIUM OXYBATE
     Dosage: DOSE ADJUSTMENT
     Route: 048
     Dates: start: 2009, end: 2017
  37. FLONASE                            /00908302/ [Concomitant]
     Active Substance: MOMETASONE FUROATE
  38. TREXIMET [Concomitant]
     Active Substance: NAPROXEN SODIUM\SUMATRIPTAN SUCCINATE

REACTIONS (1)
  - Xerophthalmia [Unknown]
